FAERS Safety Report 21459379 (Version 1)
Quarter: 2022Q4

REPORT INFORMATION
  Report Type: Spontaneous
  Country: US (occurrence: US)
  Receive Date: 20221014
  Receipt Date: 20221014
  Transmission Date: 20230112
  Serious: Yes (Other)
  Sender: FDA-Public Use
  Company Number: US-009507513-2210USA003184

PATIENT
  Age: 63 Year
  Sex: Male

DRUGS (2)
  1. CUBICIN [Suspect]
     Active Substance: DAPTOMYCIN
     Indication: Bacteroides infection
     Dosage: UNK
  2. ERTAPENEM [Suspect]
     Active Substance: ERTAPENEM
     Indication: Bacteroides infection
     Dosage: UNK

REACTIONS (2)
  - Eosinophilic pneumonia [Recovered/Resolved]
  - Product use in unapproved indication [Unknown]
